FAERS Safety Report 12758641 (Version 1)
Quarter: 2016Q3

REPORT INFORMATION
  Report Type: Spontaneous
  Country: US (occurrence: US)
  Receive Date: 20160918
  Receipt Date: 20160918
  Transmission Date: 20161109
  Serious: Yes (Other)
  Sender: FDA-Public Use
  Company Number: None

PATIENT
  Age: 25 Year
  Sex: Female
  Weight: 80 kg

DRUGS (11)
  1. BASCUBAN [Concomitant]
  2. VOLFAST [Concomitant]
  3. ANTINAL [Concomitant]
  4. VITAMIN C WITH CALCIUM [Concomitant]
  5. NIGHT CALM [Suspect]
     Active Substance: ESZOPICLONE
     Indication: ANXIETY
     Route: 048
     Dates: start: 20160917, end: 20160918
  6. PHARMATON [Concomitant]
     Active Substance: MINERALS\VITAMINS
  7. SEVEN SEAS [Concomitant]
  8. PANADOL [Concomitant]
     Active Substance: ACETAMINOPHEN
  9. ORPHAMOL [Concomitant]
  10. NIGHT CALM [Suspect]
     Active Substance: ESZOPICLONE
     Indication: SLEEP DISORDER
     Route: 048
     Dates: start: 20160917, end: 20160918
  11. PIREMPAN [Concomitant]

REACTIONS (1)
  - Dysgeusia [None]

NARRATIVE: CASE EVENT DATE: 20160918
